FAERS Safety Report 8128092-7 (Version None)
Quarter: 2012Q1

REPORT INFORMATION
  Report Type: 
  Country: None (occurrence: None)
  Receive Date: 20120210
  Receipt Date: 20120202
  Transmission Date: 20120608
  Serious: Yes (Hospitalization, Other)
  Sender: FDA-Public Use
  Company Number: US-ABBOTT-12P-163-0891260-00

PATIENT
  Sex: Female
  Weight: 78.088 kg

DRUGS (8)
  1. HUMULIN N [Concomitant]
     Indication: TYPE 2 DIABETES MELLITUS
  2. LIPITOR [Concomitant]
     Indication: PRODUCT USED FOR UNKNOWN INDICATION
  3. HUMIRA [Suspect]
     Indication: CROHN'S DISEASE
     Dosage: LOADING DOSE
     Dates: start: 20111029, end: 20111029
  4. HUMIRA [Suspect]
     Dates: start: 20111112, end: 20111112
  5. CYMBALTA [Concomitant]
     Indication: ANXIETY
  6. METFORMIN HCL [Concomitant]
     Indication: TYPE 2 DIABETES MELLITUS
  7. HUMIRA [Suspect]
     Dates: start: 20111126, end: 20120101
  8. HUMALOG [Concomitant]
     Indication: TYPE 2 DIABETES MELLITUS

REACTIONS (5)
  - GASTROINTESTINAL INFECTION [None]
  - VOMITING [None]
  - DRUG DOSE OMISSION [None]
  - CROHN'S DISEASE [None]
  - PROCEDURAL NAUSEA [None]
